FAERS Safety Report 6155137-6 (Version None)
Quarter: 2009Q2

REPORT INFORMATION
  Report Type: 
  Country: None (occurrence: None)
  Receive Date: 20090415
  Receipt Date: 20071213
  Transmission Date: 20091009
  Serious: Yes (Hospitalization, Other)
  Sender: FDA-Public Use
  Company Number: US-ASTRAZENECA-2007UW09277

PATIENT
  Age: 14813 Day
  Sex: Male
  Weight: 99.9 kg

DRUGS (39)
  1. SEROQUEL [Suspect]
     Indication: ANXIETY
     Dosage: 100-600 MG
     Route: 048
     Dates: start: 20040801, end: 20071201
  2. SEROQUEL [Suspect]
     Indication: DEPRESSION
     Dosage: 100-600 MG
     Route: 048
     Dates: start: 20040801, end: 20071201
  3. SEROQUEL [Suspect]
     Indication: INSOMNIA
     Dosage: 100-600 MG
     Route: 048
     Dates: start: 20040801, end: 20071201
  4. SEROQUEL [Suspect]
     Dosage: 25-200 MG
     Route: 048
     Dates: start: 20040520, end: 20070415
  5. SEROQUEL [Suspect]
     Dosage: 25-200 MG
     Route: 048
     Dates: start: 20040520, end: 20070415
  6. SEROQUEL [Suspect]
     Dosage: 25-200 MG
     Route: 048
     Dates: start: 20040520, end: 20070415
  7. EFFEXOR [Concomitant]
  8. METFORMIN HCL [Concomitant]
  9. KLONOPIN [Concomitant]
  10. ASPIRIN [Concomitant]
  11. PLAVIX [Concomitant]
  12. LIPITOR [Concomitant]
  13. ALTACE [Concomitant]
  14. LOPRESSOR [Concomitant]
  15. INTEGRILIN [Concomitant]
  16. VALIUM [Concomitant]
  17. AMOXICILLIN [Concomitant]
  18. DURADRIN [Concomitant]
  19. VIAGRA [Concomitant]
  20. AMBIEN [Concomitant]
  21. HYDROCODONE BITARTRATE [Concomitant]
  22. LAMICTAL [Concomitant]
  23. GABAPENTIN [Concomitant]
  24. SIMVASTATIN [Concomitant]
  25. NITROGLYCERIN [Concomitant]
  26. METHOCARBAMOL [Concomitant]
  27. LISINOPRIL [Concomitant]
  28. DIVALPROEX SODIUM [Concomitant]
  29. CHANTIX [Concomitant]
  30. TYLOX [Concomitant]
  31. TORADOL [Concomitant]
  32. DOXEPIN HCL [Concomitant]
  33. SERTRALINE HCL [Concomitant]
  34. APIPRAZOLE [Concomitant]
  35. ZOLOFT [Concomitant]
  36. CITALOPRAM HYDROBROMIDE [Concomitant]
  37. ETODOLAC [Concomitant]
  38. BUPROPION HCL [Concomitant]
  39. GLIPIZIDE [Concomitant]

REACTIONS (23)
  - ABNORMAL BEHAVIOUR [None]
  - ACUTE MYOCARDIAL INFARCTION [None]
  - ALCOHOL ABUSE [None]
  - APHTHOUS STOMATITIS [None]
  - ARTHRALGIA [None]
  - BACK PAIN [None]
  - BRONCHITIS [None]
  - CARPAL TUNNEL SYNDROME [None]
  - CHEST PAIN [None]
  - CORONARY ARTERY DISEASE [None]
  - DIABETES MELLITUS [None]
  - DIABETIC NEUROPATHY [None]
  - DYSTHYMIC DISORDER [None]
  - HEADACHE [None]
  - HERPES VIRUS INFECTION [None]
  - HYPERAESTHESIA [None]
  - HYPERHIDROSIS [None]
  - HYPERTENSION [None]
  - MIXED HYPERLIPIDAEMIA [None]
  - OEDEMA PERIPHERAL [None]
  - POST-TRAUMATIC STRESS DISORDER [None]
  - SENSORY GANGLIONITIS [None]
  - TOOTH DISORDER [None]
